FAERS Safety Report 8445215-0 (Version None)
Quarter: 2012Q2

REPORT INFORMATION
  Report Type: 
  Country: None (occurrence: None)
  Receive Date: 20120618
  Receipt Date: 20120608
  Transmission Date: 20120825
  Serious: Yes (Other)
  Sender: FDA-Public Use
  Company Number: US-JNJFOC-20120211724

PATIENT
  Sex: Female

DRUGS (16)
  1. METFORMIN HCL [Concomitant]
     Indication: DIABETES MELLITUS
     Route: 048
  2. FLUOROURACIL [Concomitant]
     Indication: SKIN CANCER
     Route: 061
  3. STELARA [Suspect]
     Route: 058
     Dates: start: 20120417
  4. FUROSEMIDE [Concomitant]
     Indication: FLUID RETENTION
     Route: 048
  5. DESONIDE [Concomitant]
     Indication: PSORIASIS
     Route: 061
  6. DESOXIMETASONE [Concomitant]
     Indication: PSORIASIS
     Route: 061
  7. STELARA [Suspect]
     Indication: PSORIASIS
     Dosage: ^84-90 DAYS^
     Route: 058
     Dates: start: 20100817
  8. LEVOTHYROXINE SODIUM [Concomitant]
     Indication: HYPOTHYROIDISM
     Route: 048
  9. ASPIRIN [Concomitant]
     Route: 048
  10. FLUOXETINE HYDROCHLORIDE [Concomitant]
     Route: 048
  11. FLUOCINOLONE ACETONIDE [Concomitant]
     Indication: PRURITUS
     Route: 061
  12. KLOR-CON [Concomitant]
     Route: 048
  13. FLUOCINOLONE ACETONIDE [Concomitant]
     Indication: PSORIASIS
     Route: 061
  14. CALCIUM W/MINERALS/VITAMIN D NOS [Concomitant]
     Route: 048
  15. CYCLOBENZAPRINE [Concomitant]
     Route: 048
  16. FLUOCINOLONE ACETONIDE [Concomitant]
     Route: 050

REACTIONS (3)
  - HYPERTENSION [None]
  - BRONCHITIS [None]
  - BLOOD GLUCOSE INCREASED [None]
